FAERS Safety Report 8311386-X (Version None)
Quarter: 2012Q2

REPORT INFORMATION
  Report Type: 
  Country: None (occurrence: None)
  Receive Date: 20120425
  Receipt Date: 20110307
  Transmission Date: 20120825
  Serious: No
  Sender: FDA-Public Use
  Company Number: US-MYLANLABS-2011S1004529

PATIENT
  Age: 77 Year
  Sex: Female
  Weight: 72.58 kg

DRUGS (5)
  1. IPRATROPIUM BROMIDE AND ALBUTEROL SULFATE [Suspect]
     Indication: EMPHYSEMA
     Route: 055
     Dates: start: 20100101
  2. VITAMIN TAB [Concomitant]
     Indication: MEDICAL DIET
  3. PROAIR HFA [Concomitant]
     Indication: EMPHYSEMA
  4. LEVOTHYROXINE SODIUM [Concomitant]
     Indication: HYPOTHYROIDISM
  5. IPRATROPIUM BROMIDE AND ALBUTEROL SULFATE [Suspect]
     Route: 055
     Dates: start: 20100101

REACTIONS (1)
  - DRUG EFFECT DECREASED [None]
